FAERS Safety Report 15169008 (Version 2)
Quarter: 2018Q3

REPORT INFORMATION
  Report Type: Report from Study
  Country: US (occurrence: US)
  Receive Date: 20180720
  Receipt Date: 20180906
  Transmission Date: 20181010
  Serious: Yes (Hospitalization, Disabling, Other)
  Sender: FDA-Public Use
  Company Number: US-GILEAD-2018-0341409

PATIENT
  Age: 7 Year
  Sex: Male
  Weight: 18 kg

DRUGS (5)
  1. AMBRISENTAN [Suspect]
     Active Substance: AMBRISENTAN
     Indication: PULMONARY HYPERTENSION
     Dosage: 5 MG, QD
     Route: 065
     Dates: start: 20180118, end: 20180430
  2. TADALAFIL [Concomitant]
     Active Substance: TADALAFIL
  3. BOSENTAN. [Concomitant]
     Active Substance: BOSENTAN
  4. AMBRISENTAN [Suspect]
     Active Substance: AMBRISENTAN
     Indication: CORONARY ARTERY DISEASE
  5. ADCIRCA [Concomitant]
     Active Substance: TADALAFIL

REACTIONS (11)
  - Hydrocephalus [Not Recovered/Not Resolved]
  - Pollakiuria [Unknown]
  - Abdominal pain [Unknown]
  - Bacterial disease carrier [Recovered/Resolved]
  - Cerebrovascular accident [Unknown]
  - Brain injury [Unknown]
  - Brain abscess [Not Recovered/Not Resolved]
  - Haemophilus infection [Recovered/Resolved]
  - Off label use [Recovered/Resolved]
  - Bacterial infection [Unknown]
  - Cerebral haemorrhage [Not Recovered/Not Resolved]
